FAERS Safety Report 17416531 (Version 1)
Quarter: 2020Q1

REPORT INFORMATION
  Report Type: Spontaneous
  Country: GB (occurrence: GB)
  Receive Date: 20200213
  Receipt Date: 20200213
  Transmission Date: 20200409
  Serious: Yes (Death)
  Sender: FDA-Public Use
  Company Number: GB-BIOVITRUM-2020GB0750

PATIENT
  Age: 39 Year
  Sex: Female
  Weight: 90 kg

DRUGS (7)
  1. ANIDULAFUNGIN [Concomitant]
     Active Substance: ANIDULAFUNGIN
  2. ANAKINRA [Suspect]
     Active Substance: ANAKINRA
     Indication: PRODUCT USED FOR UNKNOWN INDICATION
     Dates: start: 20200116, end: 20200125
  3. MEROPENEM. [Concomitant]
     Active Substance: MEROPENEM
  4. PABRINEX [Concomitant]
     Active Substance: ASCORBIC ACID\VITAMIN B COMPLEX
  5. METHYLPREDNISOLONE SODIUM SUCCINATE. [Concomitant]
     Active Substance: METHYLPREDNISOLONE SODIUM SUCCINATE
  6. PHYTOMENADIONE [Concomitant]
     Active Substance: PHYTONADIONE
  7. GANCICLOVIR. [Concomitant]
     Active Substance: GANCICLOVIR

REACTIONS (1)
  - Hepatic function abnormal [Fatal]
